FAERS Safety Report 25245207 (Version 1)
Quarter: 2025Q2

REPORT INFORMATION
  Report Type: Spontaneous
  Country: US (occurrence: US)
  Receive Date: 20250428
  Receipt Date: 20250428
  Transmission Date: 20250716
  Serious: No
  Sender: ROCHE
  Company Number: US-ROCHE-10000261927

PATIENT
  Age: 42 Year
  Sex: Female
  Weight: 77.11 kg

DRUGS (15)
  1. ACTEMRA [Suspect]
     Active Substance: TOCILIZUMAB
     Indication: Rheumatoid arthritis
     Dosage: IN THE BELLY, ONGOING
     Route: 058
     Dates: start: 202304
  2. CELLCEPT [Suspect]
     Active Substance: MYCOPHENOLATE MOFETIL
     Indication: Prophylaxis against transplant rejection
     Route: 048
     Dates: start: 202204
  3. SIROLIMUS [Concomitant]
     Active Substance: SIROLIMUS
     Route: 048
     Dates: start: 202304
  4. LYRICA [Concomitant]
     Active Substance: PREGABALIN
     Indication: Nerve injury
     Route: 048
     Dates: start: 202304
  5. SERTRALINE [Concomitant]
     Active Substance: SERTRALINE HYDROCHLORIDE
     Indication: Anxiety
     Route: 048
     Dates: start: 2025
  6. SERTRALINE [Concomitant]
     Active Substance: SERTRALINE HYDROCHLORIDE
     Indication: Depression
     Route: 048
     Dates: end: 2025
  7. BACTRIM [Concomitant]
     Active Substance: SULFAMETHOXAZOLE\TRIMETHOPRIM
     Indication: Immunosuppression
     Dosage: 400-80MG TABLET
     Route: 048
     Dates: start: 202204
  8. DIFLUCAN [Concomitant]
     Active Substance: FLUCONAZOLE
     Indication: Immunosuppression
     Route: 048
     Dates: start: 202304
  9. ZETIA [Concomitant]
     Active Substance: EZETIMIBE
     Indication: Blood cholesterol increased
     Route: 048
     Dates: start: 202404
  10. TORSEMIDE [Concomitant]
     Active Substance: TORSEMIDE
     Indication: Nephropathy
     Dosage: 2 OF 20MG
     Route: 048
     Dates: start: 202204
  11. CRESTOR [Concomitant]
     Active Substance: ROSUVASTATIN CALCIUM
     Indication: Blood cholesterol increased
     Route: 048
     Dates: start: 202206
  12. WEGOVY [Concomitant]
     Active Substance: SEMAGLUTIDE
     Indication: Blood cholesterol
     Dates: start: 202306
  13. PREDNISONE [Concomitant]
     Active Substance: PREDNISONE
     Indication: Rheumatoid arthritis
     Route: 048
     Dates: end: 202504
  14. PREDNISONE [Concomitant]
     Active Substance: PREDNISONE
     Route: 048
     Dates: start: 202503
  15. PREDNISONE [Concomitant]
     Active Substance: PREDNISONE
     Dosage: TAPERING DOSE OVER TIME
     Route: 048
     Dates: start: 202204, end: 202304

REACTIONS (13)
  - Pituitary-dependent Cushing^s syndrome [Recovered/Resolved]
  - Depression [Not Recovered/Not Resolved]
  - Blood cholesterol increased [Unknown]
  - Device difficult to use [Unknown]
  - Product dose omission issue [Unknown]
  - Underdose [Unknown]
  - Device use error [Unknown]
  - Wrong technique in device usage process [Unknown]
  - Product preparation error [Unknown]
  - Off label use [Unknown]
  - Device issue [Unknown]
  - Weight increased [Unknown]
  - Nephropathy [Unknown]

NARRATIVE: CASE EVENT DATE: 20240101
